FAERS Safety Report 20882417 (Version 2)
Quarter: 2022Q2

REPORT INFORMATION
  Report Type: Spontaneous
  Country: US (occurrence: US)
  Receive Date: 20220527
  Receipt Date: 20220620
  Transmission Date: 20220721
  Serious: No
  Sender: FDA-Public Use
  Company Number: US-BRISTOL-MYERS SQUIBB COMPANY-2022-025230

PATIENT
  Age: 56 Year
  Sex: Female

DRUGS (21)
  1. LENALIDOMIDE [Suspect]
     Active Substance: LENALIDOMIDE
     Indication: Plasma cell myeloma
     Dosage: DAILY ON DAYS 1-21
     Route: 048
  2. LENALIDOMIDE [Suspect]
     Active Substance: LENALIDOMIDE
     Route: 048
  3. Bupropion 300mg QD [Concomitant]
     Indication: Product used for unknown indication
     Dosage: QD
  4. Carvedilol BID [Concomitant]
     Indication: Product used for unknown indication
     Dosage: BID
  5. Furosemide QD [Concomitant]
     Indication: Product used for unknown indication
     Dosage: QD
  6. ranolazine BID [Concomitant]
     Indication: Product used for unknown indication
     Dosage: BID
  7. HCTZ QD [Concomitant]
     Indication: Product used for unknown indication
     Dosage: QD
  8. pregabalin QD [Concomitant]
     Indication: Product used for unknown indication
     Dosage: QD
  9. clopidogrel 75mg QD [Concomitant]
     Indication: Product used for unknown indication
     Dosage: QD
  10. potassium BID [Concomitant]
     Indication: Product used for unknown indication
     Dosage: BID
  11. dexamethasone 50mg [Concomitant]
     Indication: Product used for unknown indication
  12. Acyclovir 400mg BID [Concomitant]
     Indication: Product used for unknown indication
     Dosage: BID
  13. Oxycodone  30mg  PRN  QD [Concomitant]
     Indication: Product used for unknown indication
     Dosage: QD
  14. loratadine  10mg  QD [Concomitant]
     Indication: Product used for unknown indication
     Dosage: QD
  15. Benadryl  PRN [Concomitant]
     Indication: Product used for unknown indication
  16. Xarelto  20mg  QD [Concomitant]
     Indication: Product used for unknown indication
     Dosage: QD
  17. LOSARTAN [Concomitant]
     Active Substance: LOSARTAN
     Indication: Product used for unknown indication
     Dosage: QD
  18. LANTUS [Concomitant]
     Active Substance: INSULIN GLARGINE
     Indication: Product used for unknown indication
     Dosage: QD
  19. Humalog TIC AC and HS [Concomitant]
     Indication: Product used for unknown indication
  20. triamcinolone PRN [Concomitant]
     Indication: Product used for unknown indication
  21. Vitamin B12 shot at HCP PRN Q 1 month [Concomitant]
     Indication: Product used for unknown indication

REACTIONS (4)
  - Rash [Unknown]
  - Blood potassium decreased [Unknown]
  - Gingival swelling [Unknown]
  - Swelling [Unknown]
